FAERS Safety Report 7266626-5 (Version None)
Quarter: 2011Q1

REPORT INFORMATION
  Report Type: 
  Country: None (occurrence: None)
  Receive Date: 20110131
  Receipt Date: 20110121
  Transmission Date: 20110831
  Serious: Yes (Hospitalization)
  Sender: FDA-Public Use
  Company Number: US-BRISTOL-MYERS SQUIBB COMPANY-15517352

PATIENT
  Age: 77 Year
  Sex: Male
  Weight: 90 kg

DRUGS (9)
  1. PROSCAR [Concomitant]
     Route: 065
  2. VYTORIN [Concomitant]
     Route: 065
  3. CISPLATIN [Suspect]
     Indication: BLADDER CANCER
     Dosage: DAYS 1, 8, 15.
     Route: 042
     Dates: start: 20100808, end: 20110121
  4. CETUXIMAB [Suspect]
     Indication: BLADDER CANCER
     Dosage: 38.2143 MG, CHIMERIC ANTI-EGFR MAB.
     Route: 042
     Dates: start: 20100808, end: 20110121
  5. GEMCITABINE [Suspect]
     Indication: BLADDER CANCER
     Dosage: DAY 1, 8, 15.
     Route: 042
     Dates: start: 20100808, end: 20110121
  6. ACCUPRIL [Concomitant]
     Route: 065
  7. GLUCOPHAGE [Concomitant]
     Route: 065
  8. GLUCOTROL [Concomitant]
     Route: 065
  9. NOVOLOG [Concomitant]
     Route: 058

REACTIONS (2)
  - DEEP VEIN THROMBOSIS [None]
  - PULMONARY EMBOLISM [None]
